FAERS Safety Report 6740375-1 (Version None)
Quarter: 2010Q2

REPORT INFORMATION
  Report Type: 
  Country: None (occurrence: None)
  Receive Date: 20100521
  Receipt Date: 20100510
  Transmission Date: 20101027
  Serious: Yes (Other)
  Sender: FDA-Public Use
  Company Number: 519329

PATIENT
  Sex: Male

DRUGS (2)
  1. GENTAMICIN SULFATE [Suspect]
     Indication: ANTIBIOTIC PROPHYLAXIS
     Dosage: 3 MG/KG MILLIGRAM(S)/KILOGRAM
  2. RIVAROXABAN [Suspect]
     Indication: KNEE ARTHROPLASTY

REACTIONS (1)
  - RENAL FAILURE [None]
